FAERS Safety Report 10293068 (Version 1)
Quarter: 2014Q3

REPORT INFORMATION
  Report Type: Spontaneous
  Country: US (occurrence: US)
  Receive Date: 20140710
  Receipt Date: 20140710
  Transmission Date: 20150326
  Serious: No
  Sender: FDA-Public Use
  Company Number: US-PURDUE-USA-2013-0107701

PATIENT
  Age: 54 Year
  Sex: Female

DRUGS (2)
  1. BUTRANS [Suspect]
     Active Substance: BUPRENORPHINE
     Indication: ARTHRITIS
     Dosage: 5 MCG/HR, WEEKLY
     Route: 062
     Dates: start: 201308
  2. BUTRANS [Suspect]
     Active Substance: BUPRENORPHINE
     Indication: FIBROMYALGIA
     Dosage: 2- 5 MCG/HR PATCHES
     Route: 062
     Dates: start: 201309, end: 201309

REACTIONS (11)
  - Application site erythema [Unknown]
  - Intentional product misuse [Unknown]
  - Extra dose administered [Unknown]
  - Product adhesion issue [Recovered/Resolved]
  - Drug ineffective [Not Recovered/Not Resolved]
  - Feeling abnormal [Recovered/Resolved]
  - Application site burn [Not Recovered/Not Resolved]
  - Inadequate analgesia [Unknown]
  - Application site pain [Unknown]
  - Gait disturbance [Recovered/Resolved]
  - Application site rash [Unknown]

NARRATIVE: CASE EVENT DATE: 201309
